FAERS Safety Report 13562450 (Version 1)
Quarter: 2017Q2

REPORT INFORMATION
  Report Type: Spontaneous
  Country: GB (occurrence: GB)
  Receive Date: 20170519
  Receipt Date: 20170519
  Transmission Date: 20170830
  Serious: Yes (Other)
  Sender: FDA-Public Use
  Company Number: GB-ROCHE-1936368

PATIENT
  Age: 33 Year
  Sex: Female

DRUGS (3)
  1. ALEMTUZUMAB [Suspect]
     Active Substance: ALEMTUZUMAB
     Route: 065
     Dates: start: 201405
  2. ALEMTUZUMAB [Suspect]
     Active Substance: ALEMTUZUMAB
     Indication: BEHCET^S SYNDROME
     Route: 065
     Dates: start: 200706
  3. RITUXIMAB [Suspect]
     Active Substance: RITUXIMAB
     Indication: BEHCET^S SYNDROME
     Dosage: FOUR WEEKLY DOSES OF RITUXIMAB, AND A FURTHER TWO DOSES IN 2007
     Route: 065
     Dates: start: 200606

REACTIONS (2)
  - Progressive multifocal leukoencephalopathy [Unknown]
  - Infection [Unknown]
